FAERS Safety Report 18543135 (Version 1)
Quarter: 2020Q4

REPORT INFORMATION
  Report Type: Spontaneous
  Country: US (occurrence: US)
  Receive Date: 20201125
  Receipt Date: 20201125
  Transmission Date: 20210114
  Serious: Yes (Hospitalization, Other)
  Sender: FDA-Public Use
  Company Number: US-AUROBINDO-AUR-APL-2020-057383

PATIENT
  Age: 32 Year
  Sex: Female

DRUGS (1)
  1. ACETAMINOPHEN. [Suspect]
     Active Substance: ACETAMINOPHEN
     Indication: BACK PAIN
     Dosage: 9 GRAM, DAILY
     Route: 065

REACTIONS (4)
  - Acute hepatic failure [Recovered/Resolved]
  - Stress cardiomyopathy [Unknown]
  - Overdose [Unknown]
  - Encephalopathy [Unknown]
